FAERS Safety Report 5009629-3 (Version None)
Quarter: 2006Q2

REPORT INFORMATION
  Report Type: 
  Country: None (occurrence: None)
  Receive Date: 20060524
  Receipt Date: 20060427
  Transmission Date: 20061013
  Serious: Yes (Other)
  Sender: FDA-Public Use
  Company Number: US-GLAXOSMITHKLINE-A0603549A

PATIENT
  Age: 75 Year
  Sex: Female
  Weight: 78.6 kg

DRUGS (3)
  1. ADVAIR DISKUS 100/50 [Suspect]
     Indication: ASTHMA
     Dosage: 1PUFF TWICE PER DAY
     Route: 055
  2. SINGULAIR [Concomitant]
  3. LIPITOR [Concomitant]

REACTIONS (7)
  - ASTHMA [None]
  - CANDIDIASIS [None]
  - DEVICE MALFUNCTION [None]
  - DRUG INEFFECTIVE [None]
  - NASOPHARYNGEAL DISORDER [None]
  - OVERDOSE [None]
  - PHARMACEUTICAL PRODUCT COMPLAINT [None]
